FAERS Safety Report 4389413-4 (Version None)
Quarter: 2004Q3

REPORT INFORMATION
  Report Type: 
  Country: None (occurrence: None)
  Receive Date: 20040702
  Receipt Date: 20040617
  Transmission Date: 20050211
  Serious: Yes (Hospitalization)
  Sender: FDA-Public Use
  Company Number: GB-MERCK-0406GBR00162

PATIENT
  Age: 62 Year
  Sex: Male

DRUGS (8)
  1. PROPOXYPHENE HYDROCHLORIDE AND ACETAMINOPHEN [Concomitant]
     Indication: PAIN
     Route: 048
     Dates: start: 19960705, end: 20040520
  2. ALLOPURINOL [Concomitant]
     Indication: GOUT
     Route: 048
     Dates: start: 20020410, end: 20040520
  3. ATENOLOL [Concomitant]
     Indication: HYPERTENSION
     Route: 048
     Dates: start: 19970526, end: 20040520
  4. CANDESARTAN [Concomitant]
     Indication: HYPERTENSION
     Route: 048
     Dates: start: 20020911, end: 20040520
  5. CELECOXIB [Concomitant]
     Indication: PAIN
     Route: 048
     Dates: start: 20020508, end: 20040520
  6. EZETIMIBE [Suspect]
     Indication: BLOOD CHOLESTEROL INCREASED
     Route: 048
     Dates: start: 20040422, end: 20040520
  7. FAMOTIDINE [Concomitant]
     Indication: GASTROOESOPHAGEAL REFLUX DISEASE
     Route: 048
     Dates: start: 19970922, end: 20040520
  8. ROSUVASTATIN CALCIUM [Suspect]
     Indication: BLOOD CHOLESTEROL INCREASED
     Route: 048
     Dates: start: 20040224, end: 20040520

REACTIONS (2)
  - RENAL FAILURE ACUTE [None]
  - RHABDOMYOLYSIS [None]
